FAERS Safety Report 7994425-5 (Version None)
Quarter: 2011Q4

REPORT INFORMATION
  Report Type: 
  Country: None (occurrence: None)
  Receive Date: 20111217
  Receipt Date: 20111217
  Transmission Date: 20120403
  Serious: Yes (Hospitalization)
  Sender: FDA-Public Use
  Company Number: None

PATIENT
  Sex: Male
  Weight: 70.3 kg

DRUGS (2)
  1. ETOPOSIDE [Suspect]
     Dosage: 435 MG
  2. CISPLATIN [Suspect]
     Dosage: 116 MG

REACTIONS (4)
  - FEBRILE NEUTROPENIA [None]
  - NAUSEA [None]
  - VOMITING [None]
  - HAEMOGLOBIN DECREASED [None]
